FAERS Safety Report 15787265 (Version 2)
Quarter: 2019Q1

REPORT INFORMATION
  Report Type: Spontaneous
  Country: US (occurrence: US)
  Receive Date: 20190103
  Receipt Date: 20190104
  Transmission Date: 20190417
  Serious: No
  Sender: FDA-Public Use
  Company Number: US-PFIZER INC-2018535234

PATIENT
  Age: 56 Year
  Sex: Female
  Weight: 81.63 kg

DRUGS (1)
  1. XELJANZ XR [Suspect]
     Active Substance: TOFACITINIB CITRATE
     Indication: RHEUMATOID ARTHRITIS
     Dosage: 11 MG, 1X/DAY
     Route: 048
     Dates: start: 20181204

REACTIONS (4)
  - Pain in extremity [Recovering/Resolving]
  - Musculoskeletal pain [Recovering/Resolving]
  - Condition aggravated [Recovering/Resolving]
  - Rash [Recovered/Resolved]

NARRATIVE: CASE EVENT DATE: 20181204
